FAERS Safety Report 9443243 (Version 2)
Quarter: 2013Q3

REPORT INFORMATION
  Report Type: Spontaneous
  Country: AT (occurrence: AT)
  Receive Date: 20130806
  Receipt Date: 20130813
  Transmission Date: 20140515
  Serious: Yes (Death, Life-Threatening, Hospitalization)
  Sender: FDA-Public Use
  Company Number: AT-ROCHE-1257362

PATIENT
  Age: 77 Year
  Sex: Male

DRUGS (1)
  1. XELODA [Suspect]
     Indication: PRODUCT USED FOR UNKNOWN INDICATION
     Dosage: 3-0-3(DAY 1-8), THERAPY START DATE /APR/2013
     Route: 048
     Dates: end: 20130625

REACTIONS (12)
  - Cerebral atrophy [Fatal]
  - Syncope [Unknown]
  - Muscular weakness [Unknown]
  - Speech disorder developmental [Unknown]
  - Dizziness [Unknown]
  - Fall [Unknown]
  - Aphasia [Unknown]
  - Gait disturbance [Unknown]
  - Abasia [Unknown]
  - Facial bones fracture [Unknown]
  - Cerebral ischaemia [Unknown]
  - Cerebrovascular accident [Unknown]
